FAERS Safety Report 11102718 (Version 1)
Quarter: 2015Q2

REPORT INFORMATION
  Report Type: Spontaneous
  Country: US (occurrence: US)
  Receive Date: 20150511
  Receipt Date: 20150511
  Transmission Date: 20150821
  Serious: No
  Sender: FDA-Public Use
  Company Number: US-JNJFOC-20150416076

PATIENT
  Age: 31 Year
  Sex: Male
  Weight: 59.42 kg

DRUGS (1)
  1. INVEGA SUSTENNA [Suspect]
     Active Substance: PALIPERIDONE PALMITATE
     Indication: SCHIZOPHRENIA
     Route: 030

REACTIONS (6)
  - Weight decreased [Unknown]
  - Drug ineffective [Unknown]
  - Delusion of grandeur [Unknown]
  - Vitamin D deficiency [Unknown]
  - Decreased appetite [Unknown]
  - Treatment noncompliance [Unknown]
